FAERS Safety Report 7069244-7 (Version None)
Quarter: 2010Q4

REPORT INFORMATION
  Report Type: 
  Country: None (occurrence: None)
  Receive Date: 20101028
  Receipt Date: 20101014
  Transmission Date: 20110411
  Serious: Yes (Other)
  Sender: FDA-Public Use
  Company Number: US-AMGEN GMBH-QUU443074

PATIENT

DRUGS (3)
  1. NPLATE [Suspect]
     Indication: IDIOPATHIC THROMBOCYTOPENIC PURPURA
     Dosage: 90 A?G, UNK
     Dates: start: 20100422, end: 20100422
  2. NPLATE [Suspect]
     Indication: THROMBOCYTOPENIA
     Dates: start: 20100422, end: 20100422
  3. CORTICOSTEROID NOS [Concomitant]
     Dosage: UNK UNK, UNK
     Dates: start: 20100419

REACTIONS (2)
  - DRUG INEFFECTIVE [None]
  - PLATELET COUNT ABNORMAL [None]
